FAERS Safety Report 9560843 (Version 2)
Quarter: 2014Q3

REPORT INFORMATION
  Report Type: Spontaneous
  Country: US (occurrence: None)
  Receive Date: 20130909
  Receipt Date: 20140908
  Transmission Date: 20150326
  Serious: Yes (Hospitalization)
  Sender: FDA-Public Use
  Company Number: 375717

PATIENT
  Age: 62 Year
  Sex: Female
  Weight: 122.9 kg

DRUGS (11)
  1. LISINOPRIL/HYDROCHLORIOTHIAZIDE [Concomitant]
  2. AMARYL [Concomitant]
     Active Substance: GLIMEPIRIDE
  3. KCL [Concomitant]
     Active Substance: POTASSIUM CHLORIDE
  4. LEVEMIR [Concomitant]
     Active Substance: INSULIN DETEMIR
  5. ZANAFLEX [Concomitant]
     Active Substance: TIZANIDINE HYDROCHLORIDE
  6. MOBIC [Concomitant]
     Active Substance: MELOXICAM
  7. BABY ASPIRIN [Concomitant]
     Active Substance: ASPIRIN
  8. VICTOZA [Suspect]
     Active Substance: LIRAGLUTIDE
     Indication: TYPE 2 DIABETES MELLITUS
     Route: 058
     Dates: start: 20130220, end: 20130329
  9. WELLBUTRIN [Concomitant]
     Active Substance: BUPROPION HYDROCHLORIDE
  10. AMITRIPTYLINE [Concomitant]
     Active Substance: AMITRIPTYLINE
  11. LIPITOR [Concomitant]
     Active Substance: ATORVASTATIN CALCIUM

REACTIONS (1)
  - Pancreatitis [None]

NARRATIVE: CASE EVENT DATE: 20130328
